FAERS Safety Report 17527061 (Version 1)
Quarter: 2020Q1

REPORT INFORMATION
  Report Type: Spontaneous
  Country: US (occurrence: US)
  Receive Date: 20200310
  Receipt Date: 20200310
  Transmission Date: 20200409
  Serious: Yes (Other)
  Sender: FDA-Public Use
  Company Number: US-ASTRAZENECA-2019SE10652

PATIENT
  Age: 23373 Day
  Sex: Female
  Weight: 130.2 kg

DRUGS (30)
  1. ALPRAZOLAM. [Concomitant]
     Active Substance: ALPRAZOLAM
  2. SUCRALFATE. [Concomitant]
     Active Substance: SUCRALFATE
  3. TIZANIDINE. [Concomitant]
     Active Substance: TIZANIDINE
  4. TOPAMEX [Concomitant]
  5. GEMFIBROZIL. [Concomitant]
     Active Substance: GEMFIBROZIL
  6. PROTONIX [Suspect]
     Active Substance: PANTOPRAZOLE SODIUM
     Route: 065
     Dates: end: 20150901
  7. PREDNISONE. [Concomitant]
     Active Substance: PREDNISONE
  8. HYDROCODONE-ACETAMINOPHEN [Concomitant]
     Active Substance: ACETAMINOPHEN\HYDROCODONE
  9. NEXIUM [Suspect]
     Active Substance: ESOMEPRAZOLE MAGNESIUM
     Route: 048
     Dates: end: 20150901
  10. NEXIUM [Suspect]
     Active Substance: ESOMEPRAZOLE MAGNESIUM
     Route: 048
     Dates: start: 20120629
  11. TIZANIDINE. [Concomitant]
     Active Substance: TIZANIDINE
  12. LATEX [Concomitant]
     Active Substance: NATURAL LATEX RUBBER
  13. ALPRAZOLAM. [Concomitant]
     Active Substance: ALPRAZOLAM
  14. ROCALTROL [Concomitant]
     Active Substance: CALCITRIOL
  15. LIPITOR [Concomitant]
     Active Substance: ATORVASTATIN CALCIUM
  16. DEXILANT [Suspect]
     Active Substance: DEXLANSOPRAZOLE
     Route: 065
     Dates: end: 20150901
  17. LISINOPRIL. [Concomitant]
     Active Substance: LISINOPRIL
  18. ZOLOFT [Concomitant]
     Active Substance: SERTRALINE HYDROCHLORIDE
  19. VITAMIN D2 [Concomitant]
     Active Substance: ERGOCALCIFEROL
  20. NEURONTIN [Concomitant]
     Active Substance: GABAPENTIN
  21. CYMBALTA [Concomitant]
     Active Substance: DULOXETINE HYDROCHLORIDE
  22. PROPRANOLOL HCL [Concomitant]
     Active Substance: PROPRANOLOL HYDROCHLORIDE
  23. ERYTHROMYCIN. [Concomitant]
     Active Substance: ERYTHROMYCIN
  24. VITAMIN D2 [Concomitant]
     Active Substance: ERGOCALCIFEROL
  25. PRAVASTATIN SODIUM. [Concomitant]
     Active Substance: PRAVASTATIN SODIUM
  26. MELOXICAM. [Concomitant]
     Active Substance: MELOXICAM
  27. NEXIUM [Suspect]
     Active Substance: ESOMEPRAZOLE MAGNESIUM
     Route: 048
     Dates: start: 20150504
  28. LEVOTHYROXINE SODIUM. [Concomitant]
     Active Substance: LEVOTHYROXINE SODIUM
  29. WARFARIN SODIUM. [Concomitant]
     Active Substance: WARFARIN SODIUM
  30. BETHANECHOL [Concomitant]
     Active Substance: BETHANECHOL

REACTIONS (4)
  - Rebound acid hypersecretion [Unknown]
  - Acute kidney injury [Unknown]
  - Renal failure [Unknown]
  - Chronic kidney disease [Unknown]

NARRATIVE: CASE EVENT DATE: 20150504
